FAERS Safety Report 20555018 (Version 1)
Quarter: 2022Q1

REPORT INFORMATION
  Report Type: Spontaneous
  Country: None (occurrence: US)
  Receive Date: 20220304
  Receipt Date: 20220304
  Transmission Date: 20220423
  Serious: Yes (Death, Other)
  Sender: FDA-Public Use
  Company Number: US-Vero Biotech-2126470

PATIENT
  Sex: Female

DRUGS (2)
  1. GENOSYL [Suspect]
     Active Substance: NITRIC OXIDE
     Indication: COVID-19
     Route: 055
     Dates: start: 20220204
  2. GENOSYL [Suspect]
     Active Substance: NITRIC OXIDE

REACTIONS (3)
  - Oxygen saturation decreased [Recovering/Resolving]
  - COVID-19 [Fatal]
  - Device alarm issue [None]

NARRATIVE: CASE EVENT DATE: 20220204
